FAERS Safety Report 9821222 (Version 1)
Quarter: 2014Q1

REPORT INFORMATION
  Report Type: Spontaneous
  Country: US (occurrence: None)
  Receive Date: 20140115
  Receipt Date: 20140115
  Transmission Date: 20141002
  Serious: Yes (Disabling, Other)
  Sender: FDA-Public Use
  Company Number: None

PATIENT
  Sex: Female

DRUGS (1)
  1. NEOSPORIN [Suspect]
     Indication: SCRATCH
     Dates: start: 20131223, end: 20131223

REACTIONS (1)
  - Swelling face [None]
